FAERS Safety Report 12583649 (Version 1)
Quarter: 2016Q3

REPORT INFORMATION
  Report Type: Spontaneous
  Country: PL (occurrence: PL)
  Receive Date: 20160722
  Receipt Date: 20160722
  Transmission Date: 20161109
  Serious: Yes (Life-Threatening, Other)
  Sender: FDA-Public Use
  Company Number: PL-BAYER-2016-138553

PATIENT
  Age: 31 Year
  Sex: Female

DRUGS (2)
  1. KETOPROFEN (SYSTEMIC FORMULATION) [Suspect]
     Active Substance: KETOPROFEN
     Dosage: UNK
  2. LIGNOCAINE [Suspect]
     Active Substance: LIDOCAINE HYDROCHLORIDE
     Dosage: UNK

REACTIONS (4)
  - Cardiac arrest [None]
  - Quadriplegia [None]
  - Anaphylactic reaction [None]
  - Ischaemic stroke [None]

NARRATIVE: CASE EVENT DATE: 200901
